FAERS Safety Report 18420398 (Version 2)
Quarter: 2020Q4

REPORT INFORMATION
  Report Type: Spontaneous
  Country: US (occurrence: US)
  Receive Date: 20201023
  Receipt Date: 20201210
  Transmission Date: 20210114
  Serious: No
  Sender: FDA-Public Use
  Company Number: US-PFIZER INC-2020410817

PATIENT
  Age: 71 Year
  Sex: Female
  Weight: 48.17 kg

DRUGS (11)
  1. FAMOTIDINE. [Concomitant]
     Active Substance: FAMOTIDINE
     Indication: GASTROOESOPHAGEAL REFLUX DISEASE
     Dosage: 10 MG, 2X/DAY
  2. SUCRALFATE. [Concomitant]
     Active Substance: SUCRALFATE
     Dosage: 0.5 G, 2X/DAY (0.5G IN THE MORNING, 0.5G AT NIGHT)
  3. LIOTHYRONINE [Concomitant]
     Active Substance: LIOTHYRONINE
     Indication: DEPRESSION
  4. CARVEDILOL. [Concomitant]
     Active Substance: CARVEDILOL
     Indication: HYPERTENSION
     Dosage: 3.125 MG, 2X/DAY
  5. LETROZOLE. [Concomitant]
     Active Substance: LETROZOLE
     Indication: BREAST CANCER METASTATIC
     Dosage: 2.5 MG, 1X/DAY
     Route: 048
     Dates: start: 20201007
  6. IBRANCE [Suspect]
     Active Substance: PALBOCICLIB
     Indication: BREAST CANCER METASTATIC
     Dosage: 125 MG, CYCLIC (ONCE DAILY FOR 21 DAYS)
     Route: 048
     Dates: start: 20201019
  7. QUETIAPINE. [Concomitant]
     Active Substance: QUETIAPINE
     Indication: DEPRESSION
  8. LORAZEPAM. [Concomitant]
     Active Substance: LORAZEPAM
     Indication: ANXIETY
     Dosage: 0.5 MG, DAILY(HALF OF A TABLET IN THE MORNING AND HALF OF A TABLET AT BEDTIME)
  9. QUETIAPINE. [Concomitant]
     Active Substance: QUETIAPINE
     Indication: AFFECTIVE DISORDER
     Dosage: 25 MG, 1X/DAY (ONCE AT NIGHT)
  10. BUPROPION. [Concomitant]
     Active Substance: BUPROPION
     Indication: DEPRESSION
     Dosage: UNK, QUARTER OF A 75MG TABLET, WHICH IS ABOUT 18-19MG
  11. LIOTHYRONINE [Concomitant]
     Active Substance: LIOTHYRONINE
     Indication: THYROID HORMONES DECREASED
     Dosage: 0.75 MG, 1X/DAY (ONE IN THE MORNING)
     Route: 048

REACTIONS (7)
  - Discomfort [Unknown]
  - Mood swings [Unknown]
  - Depression [Unknown]
  - Disturbance in attention [Unknown]
  - Feeling abnormal [Unknown]
  - Agitation [Unknown]
  - Mood altered [Unknown]

NARRATIVE: CASE EVENT DATE: 2020
